FAERS Safety Report 21158051 (Version 4)
Quarter: 2023Q1

REPORT INFORMATION
  Report Type: Report from Study
  Country: FR (occurrence: FR)
  Receive Date: 20220801
  Receipt Date: 20230314
  Transmission Date: 20230418
  Serious: Yes (Hospitalization, Other)
  Sender: FDA-Public Use
  Company Number: FR-002147023-NVSC2022FR159417

PATIENT
  Age: 6 Year
  Sex: Female
  Weight: 17 kg

DRUGS (10)
  1. TOPOTECAN HYDROCHLORIDE [Suspect]
     Active Substance: TOPOTECAN HYDROCHLORIDE
     Indication: Neoplasm recurrence
     Dosage: 0.75 MG/M2 (MAXIMUM 5 DAYS EVERY 21 DAYS/ LAST DOSE WAS ON 16JUN2022)
     Dates: start: 20220504, end: 20220616
  2. VENETOCLAX [Suspect]
     Active Substance: VENETOCLAX
     Indication: Neoplasm recurrence
     Dosage: 250 MG, 1X/DAY; 250 MG, QD (LAST DOSE WAS ON 04 MAY2022)
     Route: 048
     Dates: start: 20220502, end: 20220704
  3. TEMOZOLOMIDE [Suspect]
     Active Substance: TEMOZOLOMIDE
     Indication: Neoplasm recurrence
     Dosage: 70 MG/M2, DAILY
     Dates: start: 20220504
  4. EMLA [Concomitant]
     Active Substance: LIDOCAINE\PRILOCAINE
     Indication: Pain prophylaxis
     Dosage: PRN (1 AS REQUIRED)
     Dates: start: 2019
  5. BACTRIM [Concomitant]
     Active Substance: SULFAMETHOXAZOLE\TRIMETHOPRIM
     Indication: Prophylaxis
     Dosage: 400 MG, EVERY 3 WEEKS
     Dates: start: 201912
  6. ALPRAZOLAM [Concomitant]
     Active Substance: ALPRAZOLAM
     Indication: Sleep disorder
     Dosage: 25 MG, 1X/DAY
     Dates: start: 20220504
  7. MELATONIN [Concomitant]
     Active Substance: MELATONIN
     Indication: Sleep disorder
     Dosage: 2 MG, 1X/DAY
     Dates: start: 202012
  8. SULFAMETHOXAZOLE AND TRIMETHOPRIM [Concomitant]
     Active Substance: SULFAMETHOXAZOLE\TRIMETHOPRIM
     Indication: Pneumocystis jirovecii pneumonia
     Dosage: 400 MG THREE TIMES A WEEK
     Dates: start: 201912
  9. SULFAMETHOXAZOLE AND TRIMETHOPRIM [Concomitant]
     Active Substance: SULFAMETHOXAZOLE\TRIMETHOPRIM
     Indication: Prophylaxis
  10. LIDOCAINE [Concomitant]
     Active Substance: LIDOCAINE
     Indication: Pain prophylaxis
     Dosage: 1 DF, AS NEEDED (1 PATCH)
     Dates: start: 2019

REACTIONS (8)
  - Febrile neutropenia [Not Recovered/Not Resolved]
  - Metapneumovirus infection [Recovered/Resolved]
  - Parainfluenzae virus infection [Recovered/Resolved]
  - Cough [Unknown]
  - Anaemia [Unknown]
  - Diarrhoea [Unknown]
  - Neutropenia [Unknown]
  - Pyrexia [Unknown]

NARRATIVE: CASE EVENT DATE: 20220508
